FAERS Safety Report 7826263-8 (Version None)
Quarter: 2011Q4

REPORT INFORMATION
  Report Type: 
  Country: None (occurrence: None)
  Receive Date: 20111020
  Receipt Date: 20111018
  Transmission Date: 20120403
  Serious: No
  Sender: FDA-Public Use
  Company Number: US-BIOGENIDEC-2011BI019614

PATIENT
  Age: 52 Year
  Sex: Female

DRUGS (1)
  1. TYSABRI [Suspect]
     Indication: MULTIPLE SCLEROSIS
     Route: 042
     Dates: start: 20101217

REACTIONS (6)
  - STRESS [None]
  - CONFUSIONAL STATE [None]
  - BLADDER DISORDER [None]
  - ARTHRALGIA [None]
  - FALL [None]
  - TEMPERATURE INTOLERANCE [None]
